FAERS Safety Report 7122765-0 (Version None)
Quarter: 2010Q4

REPORT INFORMATION
  Report Type: 
  Country: None (occurrence: None)
  Receive Date: 20101124
  Receipt Date: 20101118
  Transmission Date: 20110411
  Serious: Yes (Hospitalization)
  Sender: FDA-Public Use
  Company Number: BR-ROCHE-743427

PATIENT
  Sex: Female

DRUGS (1)
  1. BONIVA [Suspect]
     Route: 048

REACTIONS (3)
  - FALL [None]
  - HEAD INJURY [None]
  - LOWER LIMB FRACTURE [None]
